FAERS Safety Report 5922636-9 (Version None)
Quarter: 2008Q3

REPORT INFORMATION
  Report Type: 
  Country: None (occurrence: None)
  Receive Date: 20080925
  Receipt Date: 20080915
  Transmission Date: 20090109
  Serious: Yes (Life-Threatening)
  Sender: FDA-Public Use
  Company Number: AEUSA200800228

PATIENT
  Age: 66 Year
  Sex: Female

DRUGS (1)
  1. PANGLOBULIN [Suspect]
     Indication: GUILLAIN-BARRE SYNDROME
     Dosage: IV
     Route: 042

REACTIONS (10)
  - BASAL GANGLIA HAEMORRHAGE [None]
  - BLINDNESS CORTICAL [None]
  - BLOOD PRESSURE INADEQUATELY CONTROLLED [None]
  - CEREBRAL VASOCONSTRICTION [None]
  - COAGULOPATHY [None]
  - DYSPNOEA [None]
  - HAEMORRHAGIC STROKE [None]
  - HYPERTENSION [None]
  - ISCHAEMIC STROKE [None]
  - REVERSIBLE POSTERIOR LEUKOENCEPHALOPATHY SYNDROME [None]
